FAERS Safety Report 13268938 (Version 2)
Quarter: 2017Q1

REPORT INFORMATION
  Report Type: Spontaneous
  Country: US (occurrence: US)
  Receive Date: 20170224
  Receipt Date: 20170306
  Transmission Date: 20170428
  Serious: Yes (Other)
  Sender: FDA-Public Use
  Company Number: US-TEVA-740872USA

PATIENT
  Sex: Female

DRUGS (2)
  1. METFORMIN EXTENDED RELEASE [Suspect]
     Active Substance: METFORMIN HYDROCHLORIDE
     Route: 065
  2. METFORMIN [Suspect]
     Active Substance: METFORMIN HYDROCHLORIDE
     Indication: BLOOD GLUCOSE ABNORMAL
     Dosage: 2 IN MORNING, 2 AT NIGHT

REACTIONS (3)
  - Choking [Unknown]
  - Drug ineffective [Unknown]
  - Product difficult to swallow [Unknown]
